FAERS Safety Report 16894227 (Version 2)
Quarter: 2020Q1

REPORT INFORMATION
  Report Type: Spontaneous
  Country: FR (occurrence: FR)
  Receive Date: 20191008
  Receipt Date: 20200206
  Transmission Date: 20200409
  Serious: Yes (Other)
  Sender: FDA-Public Use
  Company Number: FR-GLAXOSMITHKLINE-FR2019179423

PATIENT
  Age: 78 Year
  Sex: Male
  Weight: 74 kg

DRUGS (8)
  1. ZELITREX [Suspect]
     Active Substance: VALACYCLOVIR HYDROCHLORIDE
     Indication: OPPORTUNISTIC INFECTION PROPHYLAXIS
     Dosage: 2 DF, QD
     Route: 048
     Dates: start: 2018
  2. BACTRIM [Suspect]
     Active Substance: SULFAMETHOXAZOLE\TRIMETHOPRIM
     Indication: OPPORTUNISTIC INFECTION PROPHYLAXIS
     Dosage: 3 DF, QW
     Route: 048
     Dates: start: 2018
  3. INNOHEP [Suspect]
     Active Substance: TINZAPARIN SODIUM
     Indication: ARRHYTHMIA PROPHYLAXIS
     Dosage: 13000 IU, QD
     Route: 058
     Dates: start: 201812
  4. DEXAMETHASONE. [Suspect]
     Active Substance: DEXAMETHASONE
     Indication: PLASMA CELL MYELOMA
     Dosage: 160 MG, CYCLIC ; CYCLICAL
     Route: 048
     Dates: start: 20181128, end: 20190822
  5. LEDERFOLINE [Suspect]
     Active Substance: LEUCOVORIN CALCIUM
     Indication: VITAMIN SUPPLEMENTATION
     Dosage: 1 DF, QW
     Route: 048
     Dates: start: 2018
  6. SOTALOL HYDROCHLORIDE. [Suspect]
     Active Substance: SOTALOL HYDROCHLORIDE
     Indication: ARRHYTHMIA PROPHYLAXIS
     Dosage: 160 MG, QD
     Route: 048
     Dates: start: 201812
  7. REVLIMID [Suspect]
     Active Substance: LENALIDOMIDE
     Indication: PLASMA CELL MYELOMA
     Dosage: 525 MG, CYCLIC ; CYCLICAL
     Route: 048
     Dates: start: 20181128, end: 20190826
  8. KYPROLIS [Suspect]
     Active Substance: CARFILZOMIB
     Indication: PLASMA CELL MYELOMA
     Dosage: 300 MG, CYCLIC ; CYCLICAL
     Route: 042
     Dates: start: 20181128, end: 20190821

REACTIONS (1)
  - Pulmonary arterial hypertension [Recovering/Resolving]

NARRATIVE: CASE EVENT DATE: 20190821
